FAERS Safety Report 6865988-8 (Version None)
Quarter: 2010Q3

REPORT INFORMATION
  Report Type: 
  Country: None (occurrence: None)
  Receive Date: 20100719
  Receipt Date: 20100712
  Transmission Date: 20110219
  Serious: Yes (Hospitalization, Disabling)
  Sender: FDA-Public Use
  Company Number: 2008JP000651

PATIENT
  Age: 60 Year
  Sex: Male

DRUGS (2)
  1. PROTOPIC [Suspect]
     Indication: LICHEN PLANUS
     Dosage: 0.1%, TOPICAL
     Route: 061
     Dates: start: 20060408, end: 20061208
  2. RINDERON-VG (GENTAMICIN SULFATE, BETAMETHASONE VALERATE) [Concomitant]

REACTIONS (10)
  - HEPATIC FUNCTION ABNORMAL [None]
  - LYMPHADENOPATHY MEDIASTINAL [None]
  - METASTASES TO BONE MARROW [None]
  - METASTASES TO LIVER [None]
  - METASTASES TO LUNG [None]
  - METASTASES TO LYMPH NODES [None]
  - RESPIRATORY FAILURE [None]
  - SMALL CELL LUNG CANCER STAGE UNSPECIFIED [None]
  - SQUAMOUS CELL CARCINOMA [None]
  - TRISMUS [None]
